FAERS Safety Report 18125395 (Version 1)
Quarter: 2020Q3

REPORT INFORMATION
  Report Type: Spontaneous
  Country: PT (occurrence: PT)
  Receive Date: 20200807
  Receipt Date: 20200807
  Transmission Date: 20201103
  Serious: Yes (Death, Other)
  Sender: FDA-Public Use
  Company Number: PT-PFIZER INC-2020299925

PATIENT
  Age: 89 Year
  Sex: Female
  Weight: 65 kg

DRUGS (20)
  1. PARACETAMOL [Concomitant]
     Active Substance: ACETAMINOPHEN
     Dosage: UNK
     Route: 042
  2. FUROSEMIDE. [Concomitant]
     Active Substance: FUROSEMIDE
     Dosage: UNK
     Route: 042
  3. ENOXAPARIN SODIUM. [Concomitant]
     Active Substance: ENOXAPARIN SODIUM
     Dosage: UNK
     Route: 058
  4. AMOXICILLIN + CLAVULANIC ACID [Concomitant]
     Active Substance: AMOXICILLIN\CLAVULANIC ACID
     Dosage: UNK
     Route: 042
  5. PLAQUINOL [Suspect]
     Active Substance: HYDROXYCHLOROQUINE SULFATE
     Dosage: 200 MG, ONCE A DAY (400 MG OF12/12H IN D0 AND THEN 200 MG OF 12/12H)
     Route: 048
     Dates: start: 20200331, end: 20200409
  6. MEROPENEM. [Concomitant]
     Active Substance: MEROPENEM
     Dosage: UNK
     Route: 042
  7. NOREPINEPHRINE. [Concomitant]
     Active Substance: NOREPINEPHRINE
     Dosage: UNK
     Route: 042
  8. AZITHROMYCIN ANHYDROUS. [Suspect]
     Active Substance: AZITHROMYCIN ANHYDROUS
     Indication: COVID-19
     Dosage: 500 MG, ONCE A DAY
     Route: 048
     Dates: start: 20200401, end: 20200406
  9. AMIODARONE [Concomitant]
     Active Substance: AMIODARONE
     Dosage: UNK
     Route: 042
  10. SODIUM CHLORIDE. [Concomitant]
     Active Substance: SODIUM CHLORIDE
     Dosage: UNK
     Route: 042
  11. ESOMEPRAZOLE. [Concomitant]
     Active Substance: ESOMEPRAZOLE MAGNESIUM
     Dosage: UNK
     Route: 042
  12. MAGNESIUM SULFATE. [Concomitant]
     Active Substance: MAGNESIUM SULFATE
     Dosage: UNK
     Route: 042
  13. HUMAN SERUM ALBUMIN [Concomitant]
     Active Substance: ALBUMIN HUMAN
     Dosage: UNK
     Route: 042
  14. CALCIUM GLUCONATE. [Concomitant]
     Active Substance: CALCIUM GLUCONATE
     Dosage: UNK
     Route: 042
  15. LACTITOL [Concomitant]
     Active Substance: LACTITOL
     Dosage: UNK
     Route: 048
  16. POTASSIUM DIHYDROGEN PHOSPHATE [Concomitant]
     Active Substance: POTASSIUM PHOSPHATE, MONOBASIC
     Dosage: UNK
     Route: 042
  17. PLAQUINOL [Suspect]
     Active Substance: HYDROXYCHLOROQUINE SULFATE
     Indication: COVID-19
     Dosage: 400 MG, ONCE A DAY (400 MG OF12/12H IN D0 AND THEN 200 MG OF 12/12H)
     Route: 048
     Dates: start: 20200331, end: 20200409
  18. GLUCOSE [Concomitant]
     Active Substance: DEXTROSE
     Dosage: UNK
     Route: 042
  19. OXAZEPAM. [Concomitant]
     Active Substance: OXAZEPAM
     Dosage: UNK
     Route: 048
  20. POTASSIUM CHLORIDE. [Concomitant]
     Active Substance: POTASSIUM CHLORIDE
     Dosage: UNK
     Route: 042

REACTIONS (7)
  - Intestinal ischaemia [Fatal]
  - Off label use [Unknown]
  - Electrocardiogram QT prolonged [Recovered/Resolved]
  - Product use in unapproved indication [Unknown]
  - Cholestasis [Fatal]
  - Septic shock [Fatal]
  - Acute kidney injury [Recovered/Resolved]

NARRATIVE: CASE EVENT DATE: 20200401
